FAERS Safety Report 19101145 (Version 3)
Quarter: 2021Q2

REPORT INFORMATION
  Report Type: Other
  Country: US (occurrence: US)
  Receive Date: 20210407
  Receipt Date: 20210505
  Transmission Date: 20210717
  Serious: Yes (Death)
  Sender: FDA-Public Use
  Company Number: US-ROCHE-2801642

PATIENT
  Age: 57 Year
  Sex: Male

DRUGS (1)
  1. OCREVUS [Suspect]
     Active Substance: OCRELIZUMAB
     Indication: MULTIPLE SCLEROSIS
     Dosage: INFUSE 300 MG ON DAY ONE AND AGAIN ON DAY 15, THEN 600 MG ONCE IN 6 MONTHS?DATE OF TREATMENT: 16/AUG
     Route: 042
     Dates: start: 20190722, end: 20200830

REACTIONS (1)
  - Death [Fatal]

NARRATIVE: CASE EVENT DATE: 20210325
